FAERS Safety Report 7469957-9 (Version None)
Quarter: 2011Q2

REPORT INFORMATION
  Report Type: 
  Country: None (occurrence: None)
  Receive Date: 20110510
  Receipt Date: 20110330
  Transmission Date: 20111010
  Serious: Yes (Hospitalization, Other)
  Sender: FDA-Public Use
  Company Number: US-BAYER-201042022NA

PATIENT
  Age: 22 Year
  Sex: Female
  Weight: 131.52 kg

DRUGS (18)
  1. METRONIDAZOLE [Concomitant]
     Dosage: UNK
     Dates: start: 20080701
  2. FLUCONAZOLE [Concomitant]
     Dosage: UNK
     Dates: start: 20081001
  3. PROMETHAZINE [Concomitant]
     Indication: NAUSEA
     Dosage: UNK
     Dates: start: 20081017
  4. HYDROXYZINE [Concomitant]
     Indication: MULTIPLE ALLERGIES
     Dosage: UNK
     Dates: start: 20081003
  5. METRONIDAZOLE [Concomitant]
     Dosage: UNK
  6. FLUCONAZOLE [Concomitant]
     Dosage: UNK
     Dates: start: 20050701
  7. FLUCONAZOLE [Concomitant]
     Dosage: UNK
     Dates: start: 20071201
  8. CEFUROXIME [Concomitant]
     Dosage: UNK
     Dates: start: 20081001
  9. YAZ [Suspect]
     Indication: CONTRACEPTION
     Dosage: UNK
     Route: 048
     Dates: start: 20071101, end: 20081017
  10. LEVOFLOXACIN [Concomitant]
     Dosage: UNK
     Dates: start: 20081001
  11. TOPAMAX [Concomitant]
     Indication: MIGRAINE
     Dosage: UNK
     Dates: start: 20081001
  12. QUININE SULFATE [QUININE SULFATE] [Concomitant]
     Indication: MUSCLE SPASMS
     Dosage: UNK
     Dates: start: 20081015
  13. METRONIDAZOLE [Concomitant]
     Dosage: UNK
     Dates: start: 20071201
  14. TORADOL [Concomitant]
     Dosage: UNK
     Route: 040
     Dates: start: 20081101
  15. PREDNISONE [Concomitant]
     Indication: UPPER RESPIRATORY TRACT INFECTION
     Dosage: UNK
     Dates: start: 20081010
  16. METRONIDAZOLE [Concomitant]
     Dosage: UNK
     Dates: start: 20080801
  17. HYDROCHLOROTHIAZIDE [Concomitant]
     Indication: HYPERTENSION
     Dosage: UNK
     Dates: start: 20070401, end: 20090101
  18. ALBUTEROL [Concomitant]
     Indication: ASTHMA
     Dosage: UNK
     Dates: start: 20081026

REACTIONS (10)
  - NAUSEA [None]
  - WEIGHT INCREASED [None]
  - DEEP VEIN THROMBOSIS [None]
  - FATIGUE [None]
  - OEDEMA PERIPHERAL [None]
  - PANIC ATTACK [None]
  - PAIN IN EXTREMITY [None]
  - DYSPNOEA [None]
  - PULMONARY EMBOLISM [None]
  - PNEUMONIA [None]
